FAERS Safety Report 11320965 (Version 4)
Quarter: 2019Q1

REPORT INFORMATION
  Report Type: Spontaneous
  Country: US (occurrence: US)
  Receive Date: 20150729
  Receipt Date: 20190319
  Transmission Date: 20190417
  Serious: No
  Sender: FDA-Public Use
  Company Number: US-PFIZER INC-2015248283

PATIENT
  Age: 46 Year
  Sex: Female
  Weight: 52 kg

DRUGS (21)
  1. LYRICA [Suspect]
     Active Substance: PREGABALIN
     Indication: BONE PAIN
  2. LYRICA [Suspect]
     Active Substance: PREGABALIN
     Indication: NECK PAIN
  3. LYRICA [Suspect]
     Active Substance: PREGABALIN
     Indication: PAIN
  4. ZOLOFT [Concomitant]
     Active Substance: SERTRALINE HYDROCHLORIDE
     Indication: BIPOLAR DISORDER
     Dosage: 150 MG, ONCE A DAY
     Dates: start: 2005
  5. ABILIFY [Concomitant]
     Active Substance: ARIPIPRAZOLE
     Dosage: 15 MG, 1X/DAY(TAKE 1 TABLET(S) BY MOUTH 1 TIME A DAY )
     Route: 048
     Dates: start: 20171009
  6. TRILEPTAL [Concomitant]
     Active Substance: OXCARBAZEPINE
     Indication: AFFECTIVE DISORDER
     Dosage: 300 MG, 2X/DAY(TAKE 1 TABLET(S) BY MOUTH 2 TIMES A DAY FOR MOOD)
     Route: 048
     Dates: start: 20171027
  7. ESTROGEN [Concomitant]
     Active Substance: ESTROGENS
     Indication: MENOPAUSE
     Dosage: MINIMUM DOSE, ONCE A DAY
     Dates: start: 201402
  8. CLONIDINE. [Concomitant]
     Active Substance: CLONIDINE
     Indication: HYPERTENSION
     Dosage: 0.1 MG, 3X/DAY (TAKE 1 TABLET(S) BY MOUTH 3 TIMES A DAY FOR NM, HTN)
     Route: 048
     Dates: start: 20180118
  9. QUETIAPINE. [Concomitant]
     Active Substance: QUETIAPINE
     Dosage: 50 MG, 1X/DAY(TAKE 1 TABLET(S) BY MOUTH 1 TIME A DAY AT BEDTIME)
     Route: 048
     Dates: start: 20180118
  10. ESTROGEN [Concomitant]
     Active Substance: ESTROGENS
     Indication: HOT FLUSH
  11. LYRICA [Suspect]
     Active Substance: PREGABALIN
     Indication: OSTEOPOROSIS
     Dosage: 100 MG, 2X/DAY(TAKE 1 CAPSULE(S) BY MOUTH 2 TIMES A DAY FOR PAIN, ANXIETY)
     Route: 048
     Dates: start: 20180118
  12. ZOLOFT [Concomitant]
     Active Substance: SERTRALINE HYDROCHLORIDE
     Dosage: 200 MG, 1X/DAY(TAKE 2 TABLETS BY MOUTH 1 TIME A DAY IN THE MORNING BEFORE NOON)
     Route: 048
     Dates: start: 20180118
  13. OMEPRAZOLE. [Concomitant]
     Active Substance: OMEPRAZOLE
     Indication: GASTROOESOPHAGEAL REFLUX DISEASE
     Dosage: 40 MG, ONCE A DAY
     Dates: start: 2013
  14. SEROQUEL [Concomitant]
     Active Substance: QUETIAPINE FUMARATE
     Dosage: 100 MG, 1X/DAY(TAKE 1 TABLET(S) BY MOUTH 1 TIME A DAY AT BEDTIME)
     Route: 048
     Dates: start: 20171009
  15. PROGESTERONE. [Concomitant]
     Active Substance: PROGESTERONE
     Indication: HOT FLUSH
  16. LYRICA [Suspect]
     Active Substance: PREGABALIN
     Indication: MUSCULOSKELETAL PAIN
  17. PROGESTERONE. [Concomitant]
     Active Substance: PROGESTERONE
     Indication: MENOPAUSE
     Dosage: MINIMUM DOSE, ONCE A DAY
     Dates: start: 201406
  18. LISINOPRIL. [Concomitant]
     Active Substance: LISINOPRIL
     Indication: HYPERTENSION
     Dosage: 0.25 MG, UNK
     Dates: start: 2010
  19. DICLOFENAC [Concomitant]
     Active Substance: DICLOFENAC
     Indication: ARTHRITIS
     Dosage: UNK, ONCE AND UP TO TWICE A DAY
  20. LYRICA [Suspect]
     Active Substance: PREGABALIN
     Indication: NECK INJURY
     Dosage: 200 MG, TWICE DAILY (IN THE MORNING AND AT NIGHT)
  21. LYRICA [Suspect]
     Active Substance: PREGABALIN
     Indication: ANXIETY

REACTIONS (4)
  - Mutism [Unknown]
  - Laryngitis [Unknown]
  - Intentional product misuse [Unknown]
  - Dyskinesia [Not Recovered/Not Resolved]

NARRATIVE: CASE EVENT DATE: 2014
